FAERS Safety Report 8321478-7 (Version None)
Quarter: 2012Q2

REPORT INFORMATION
  Report Type: 
  Country: None (occurrence: None)
  Receive Date: 20120430
  Receipt Date: 20120430
  Transmission Date: 20120825
  Serious: Yes (Hospitalization, Other)
  Sender: FDA-Public Use
  Company Number: None

PATIENT
  Age: 29 Year
  Sex: Female
  Weight: 52.163 kg

DRUGS (3)
  1. TOPIRAMATE [Suspect]
     Indication: MIGRAINE
     Dosage: 100.0 MG
     Route: 048
     Dates: start: 20100201, end: 20120220
  2. VERAPAMIL [Concomitant]
     Dosage: 40MG
     Route: 048
  3. PERCOCET [Concomitant]

REACTIONS (3)
  - VANISHING TWIN SYNDROME [None]
  - MATERNAL DRUGS AFFECTING FOETUS [None]
  - UNINTENDED PREGNANCY [None]
